FAERS Safety Report 18511366 (Version 1)
Quarter: 2020Q4

REPORT INFORMATION
  Report Type: Spontaneous
  Country: US (occurrence: US)
  Receive Date: 20201117
  Receipt Date: 20201117
  Transmission Date: 20210114
  Serious: No
  Sender: FDA-Public Use
  Company Number: US-JNJFOC-A-US2016-129682

PATIENT
  Age: 79 Year
  Sex: Female

DRUGS (14)
  1. SILDENAFIL. [Concomitant]
     Active Substance: SILDENAFIL
  2. POTASSIUM [Concomitant]
     Active Substance: POTASSIUM
  3. CRESTOR [Concomitant]
     Active Substance: ROSUVASTATIN CALCIUM
  4. SPIRONOLACTONE. [Concomitant]
     Active Substance: SPIRONOLACTONE
  5. KLONOPIN [Concomitant]
     Active Substance: CLONAZEPAM
  6. BYSTOLIC [Concomitant]
     Active Substance: NEBIVOLOL HYDROCHLORIDE
  7. XARELTO [Concomitant]
     Active Substance: RIVAROXABAN
  8. NASONEX [Concomitant]
     Active Substance: MOMETASONE FUROATE
  9. ADCIRCA [Concomitant]
     Active Substance: TADALAFIL
  10. FUROSEMIDE. [Concomitant]
     Active Substance: FUROSEMIDE
  11. SINGULAIR [Concomitant]
     Active Substance: MONTELUKAST SODIUM
  12. NEXIUM [Concomitant]
     Active Substance: ESOMEPRAZOLE MAGNESIUM
  13. HYDROCODONE [Concomitant]
     Active Substance: HYDROCODONE
  14. OPSUMIT [Suspect]
     Active Substance: MACITENTAN
     Indication: PULMONARY ARTERIAL HYPERTENSION
     Dosage: 10 MG, UNK
     Route: 048
     Dates: start: 20150423

REACTIONS (11)
  - Somnolence [Unknown]
  - Dizziness [Unknown]
  - Dyspnoea [Unknown]
  - Anaemia [Recovering/Resolving]
  - Nasal congestion [Unknown]
  - Nasal congestion [Not Recovered/Not Resolved]
  - Weight increased [Unknown]
  - Epistaxis [Not Recovered/Not Resolved]
  - Fluid retention [Recovering/Resolving]
  - Peripheral swelling [Unknown]
  - Malaise [Unknown]

NARRATIVE: CASE EVENT DATE: 20151221
